FAERS Safety Report 23669122 (Version 1)
Quarter: 2024Q1

REPORT INFORMATION
  Report Type: Spontaneous
  Country: US (occurrence: None)
  Receive Date: 20240322
  Receipt Date: 20240322
  Transmission Date: 20240410
  Serious: No
  Sender: FDA-Public Use
  Company Number: None

PATIENT
  Age: 72 Year
  Sex: Female

DRUGS (2)
  1. AMBRISENTAN [Suspect]
     Active Substance: AMBRISENTAN
     Dosage: 5 MG DAILY ORL ?
     Route: 048
  2. ALTEPLASE [Suspect]
     Active Substance: ALTEPLASE

REACTIONS (3)
  - Dyspnoea [None]
  - Wheezing [None]
  - Lip swelling [None]

NARRATIVE: CASE EVENT DATE: 20240321
